FAERS Safety Report 24298593 (Version 1)
Quarter: 2024Q3

REPORT INFORMATION
  Report Type: Spontaneous
  Country: US (occurrence: None)
  Receive Date: 20240907
  Receipt Date: 20240907
  Transmission Date: 20241016
  Serious: No
  Sender: Public
  Company Number: None

PATIENT
  Age: 30 Year
  Sex: Female
  Weight: 69.75 kg

DRUGS (6)
  1. DEXTROAMPHET SACCHARAT, AMPHET ASPARTATE, DEXTROAMPHET SULFATE AND AMP [Suspect]
     Active Substance: AMPHETAMINE ASPARTATE\AMPHETAMINE SULFATE\DEXTROAMPHETAMINE SACCHARATE\DEXTROAMPHETAMINE SULFATE
     Indication: Narcolepsy
  2. WAKIX [Concomitant]
     Active Substance: PITOLISANT HYDROCHLORIDE
  3. XYWAV [Concomitant]
     Active Substance: CALCIUM OXYBATE\MAGNESIUM OXYBATE\POTASSIUM OXYBATE\SODIUM OXYBATE
  4. MODAFINIL [Concomitant]
     Active Substance: MODAFINIL
  5. TRETINOIN [Concomitant]
     Active Substance: TRETINOIN
  6. Women^s one a day HEB version [Concomitant]

REACTIONS (2)
  - Photosensitivity reaction [None]
  - Sunburn [None]

NARRATIVE: CASE EVENT DATE: 20240826
